FAERS Safety Report 20998467 (Version 1)
Quarter: 2022Q2

REPORT INFORMATION
  Report Type: Spontaneous
  Country: US (occurrence: US)
  Receive Date: 20220623
  Receipt Date: 20220623
  Transmission Date: 20220721
  Serious: No
  Sender: FDA-Public Use
  Company Number: US-PFIZER INC-PV202200007197

PATIENT
  Age: 35 Year
  Sex: Male

DRUGS (4)
  1. DOXEPIN HCL [Suspect]
     Active Substance: DOXEPIN HYDROCHLORIDE
     Indication: Urticaria
     Dosage: UNK
  2. MONTELUKAST [Suspect]
     Active Substance: MONTELUKAST SODIUM
     Indication: Urticaria
     Dosage: UNK
  3. XOLAIR [Suspect]
     Active Substance: OMALIZUMAB
     Indication: Urticaria
     Dosage: UNK (VIA INJECTION INTO EACH SHOULDER)
     Dates: start: 202106, end: 202111
  4. PREDNISONE [Suspect]
     Active Substance: PREDNISONE
     Indication: Urticaria

REACTIONS (6)
  - Depression [Unknown]
  - Anxiety [Unknown]
  - Lethargy [Unknown]
  - Abdominal distension [Unknown]
  - Drug ineffective for unapproved indication [Unknown]
  - Off label use [Unknown]
